FAERS Safety Report 17704616 (Version 2)
Quarter: 2020Q3

REPORT INFORMATION
  Report Type: Spontaneous
  Country: PT (occurrence: PT)
  Receive Date: 20200424
  Receipt Date: 20200704
  Transmission Date: 20201102
  Serious: No
  Sender: FDA-Public Use
  Company Number: PT-TOLMAR, INC.-20PT021077

PATIENT
  Age: 74 Year
  Sex: Male
  Weight: 100 kg

DRUGS (1)
  1. ELIGARD [Suspect]
     Active Substance: LEUPROLIDE ACETATE
     Indication: PROSTATE CANCER
     Dosage: 45 MG, Q 6 MONTH
     Route: 058
     Dates: start: 20200413

REACTIONS (4)
  - Device leakage [None]
  - Syringe issue [None]
  - Wrong technique in product usage process [None]
  - Intercepted product preparation error [None]

NARRATIVE: CASE EVENT DATE: 20200413
